FAERS Safety Report 11347135 (Version 1)
Quarter: 2015Q3

REPORT INFORMATION
  Report Type: Spontaneous
  Country: US (occurrence: US)
  Receive Date: 20150806
  Receipt Date: 20150806
  Transmission Date: 20151125
  Serious: Yes (Life-Threatening, Other)
  Sender: FDA-Public Use
  Company Number: US-MALLINCKRODT-T201503697

PATIENT
  Age: 19 Year
  Sex: Male

DRUGS (1)
  1. METHADOSE [Suspect]
     Active Substance: METHADONE HYDROCHLORIDE
     Indication: ABDOMINAL PAIN
     Dosage: 100 MG, SINGLE
     Route: 065

REACTIONS (3)
  - Coma [Recovered/Resolved]
  - Leukoencephalopathy [Recovering/Resolving]
  - Overdose [Recovered/Resolved]
